FAERS Safety Report 18745678 (Version 3)
Quarter: 2021Q3

REPORT INFORMATION
  Report Type: Report from Study
  Country: CA (occurrence: CA)
  Receive Date: 20210115
  Receipt Date: 20210813
  Transmission Date: 20211014
  Serious: Yes (Other)
  Sender: FDA-Public Use
  Company Number: CA-ASTRAZENECA-2021A004635

PATIENT
  Sex: Female

DRUGS (11)
  1. FASENRA [Suspect]
     Active Substance: BENRALIZUMAB
     Indication: ASTHMA
     Dosage: 30.0MG UNKNOWN
     Route: 058
     Dates: start: 20190917
  2. JUBLIA [Concomitant]
     Active Substance: EFINACONAZOLE
  3. BIOTINE [Concomitant]
  4. SYMBICORT [Concomitant]
     Active Substance: BUDESONIDE\FORMOTEROL FUMARATE DIHYDRATE
  5. RANITIDINE. [Concomitant]
     Active Substance: RANITIDINE
  6. ALVESCO [Concomitant]
     Active Substance: CICLESONIDE
  7. VENTOLIN [Concomitant]
     Active Substance: ALBUTEROL SULFATE
  8. NITRO SPRAY [Concomitant]
     Active Substance: NITROGLYCERIN
  9. XOLAIR [Concomitant]
     Active Substance: OMALIZUMAB
  10. PANTOPRAZOLE [Concomitant]
     Active Substance: PANTOPRAZOLE
  11. DILTIAZEM. [Concomitant]
     Active Substance: DILTIAZEM

REACTIONS (2)
  - Drug ineffective [Unknown]
  - Asthma [Recovering/Resolving]
